FAERS Safety Report 9403320 (Version 1)
Quarter: 2013Q3

REPORT INFORMATION
  Report Type: Spontaneous
  Country: BR (occurrence: BR)
  Receive Date: 20130716
  Receipt Date: 20130716
  Transmission Date: 20140515
  Serious: Yes (Other)
  Sender: FDA-Public Use
  Company Number: ALCN2013BR000458

PATIENT
  Age: 58 Year
  Sex: Female
  Weight: 70 kg

DRUGS (3)
  1. DUOTRAVATAN [BAC] [Suspect]
     Indication: GLAUCOMA
     Dosage: 1 GTT, QD
     Route: 047
     Dates: start: 1998
  2. OMEPRAZOL ^ESTEVE^ [Concomitant]
     Indication: GASTROINTESTINAL DISORDER
     Dosage: 1 UNK, QD
     Route: 048
     Dates: start: 2010
  3. ATENOLOL [Concomitant]
     Indication: BLOOD PRESSURE INCREASED
     Dosage: 1 UNK, QD
     Route: 048
     Dates: start: 2003

REACTIONS (1)
  - Blindness [Not Recovered/Not Resolved]
